FAERS Safety Report 23760226 (Version 1)
Quarter: 2024Q2

REPORT INFORMATION
  Report Type: Spontaneous
  Country: JP (occurrence: JP)
  Receive Date: 20240419
  Receipt Date: 20240419
  Transmission Date: 20240716
  Serious: Yes (Other)
  Sender: FDA-Public Use
  Company Number: JP-SUN PHARMACEUTICAL INDUSTRIES LTD-2024R1-442283

PATIENT
  Age: 60 Year
  Sex: Male

DRUGS (1)
  1. VALSARTAN [Suspect]
     Active Substance: VALSARTAN
     Indication: Proteinuria
     Dosage: 80 MILLIGRAM, DAILY
     Route: 065

REACTIONS (2)
  - Protein urine present [Unknown]
  - Therapeutic product effect incomplete [Unknown]
